FAERS Safety Report 16799965 (Version 1)
Quarter: 2019Q3

REPORT INFORMATION
  Report Type: Spontaneous
  Country: US (occurrence: US)
  Receive Date: 20190912
  Receipt Date: 20190912
  Transmission Date: 20191005
  Serious: No
  Sender: FDA-Public Use
  Company Number: US-ASTELLAS-2018US040693

PATIENT
  Age: 77 Year
  Sex: Male

DRUGS (2)
  1. XTANDI [Suspect]
     Active Substance: ENZALUTAMIDE
     Indication: PRODUCT USED FOR UNKNOWN INDICATION
     Route: 065
     Dates: start: 20180209
  2. XTANDI [Suspect]
     Active Substance: ENZALUTAMIDE
     Dosage: 2 TABS ALTERNATING WITH 3 TABLETS, OTHER
     Route: 065

REACTIONS (3)
  - Fatigue [Unknown]
  - Asthenia [Recovering/Resolving]
  - Somnolence [Unknown]

NARRATIVE: CASE EVENT DATE: 201803
